FAERS Safety Report 5287628-4 (Version None)
Quarter: 2007Q1

REPORT INFORMATION
  Report Type: 
  Country: None (occurrence: None)
  Receive Date: 20070110
  Receipt Date: 20061019
  Transmission Date: 20070707
  Serious: Yes (Other)
  Sender: FDA-Public Use
  Company Number: 2005065088

PATIENT
  Sex: Male

DRUGS (1)
  1. HALCION [Suspect]
     Indication: DRUG USE FOR UNKNOWN INDICATION
     Dosage: (0.25 MG)

REACTIONS (3)
  - ASTHENIA [None]
  - DRUG DEPENDENCE [None]
  - INSOMNIA [None]
